FAERS Safety Report 7464595-6 (Version None)
Quarter: 2011Q2

REPORT INFORMATION
  Report Type: 
  Country: None (occurrence: None)
  Receive Date: 20110509
  Receipt Date: 20110427
  Transmission Date: 20111010
  Serious: Yes (Other)
  Sender: FDA-Public Use
  Company Number: US-NOVOPROD-327275

PATIENT
  Sex: Female
  Weight: 157.82 kg

DRUGS (2)
  1. VICTOZA [Suspect]
     Indication: TYPE 2 DIABETES MELLITUS
     Dosage: UNK
     Dates: start: 20100901, end: 20110306
  2. METFORMIN [Concomitant]
     Indication: TYPE 2 DIABETES MELLITUS

REACTIONS (8)
  - GASTRITIS [None]
  - DIARRHOEA [None]
  - FLUID RETENTION [None]
  - PYREXIA [None]
  - URINE OUTPUT DECREASED [None]
  - HEADACHE [None]
  - WEIGHT INCREASED [None]
  - BACK PAIN [None]
